FAERS Safety Report 7120044-9 (Version None)
Quarter: 2010Q4

REPORT INFORMATION
  Report Type: 
  Country: None (occurrence: None)
  Receive Date: 20101123
  Receipt Date: 20101115
  Transmission Date: 20110411
  Serious: Yes (Death)
  Sender: FDA-Public Use
  Company Number: US-PFIZER INC-2010152210

PATIENT
  Age: 27 Year
  Sex: Male

DRUGS (1)
  1. ALPRAZOLAM [Suspect]

REACTIONS (2)
  - INJURY [None]
  - ROAD TRAFFIC ACCIDENT [None]
